FAERS Safety Report 23129951 (Version 3)
Quarter: 2023Q4

REPORT INFORMATION
  Report Type: Spontaneous
  Country: US (occurrence: US)
  Receive Date: 20231031
  Receipt Date: 20231215
  Transmission Date: 20240110
  Serious: No
  Sender: FDA-Public Use
  Company Number: US-LUPIN PHARMACEUTICALS INC.-2023-09484

PATIENT

DRUGS (2)
  1. TIOTROPIUM BROMIDE [Suspect]
     Active Substance: TIOTROPIUM BROMIDE
     Indication: Chronic obstructive pulmonary disease
     Dosage: 1 DOSAGE FORM, QD
     Dates: start: 2023
  2. TIOTROPIUM BROMIDE [Suspect]
     Active Substance: TIOTROPIUM BROMIDE
     Dosage: 1 DOSAGE FORM, QD
     Dates: start: 2023

REACTIONS (5)
  - Incorrect dose administered [Unknown]
  - Device malfunction [Unknown]
  - Product substitution issue [Unknown]
  - Device mechanical issue [Unknown]
  - No adverse event [Unknown]
